FAERS Safety Report 16583020 (Version 2)
Quarter: 2019Q3

REPORT INFORMATION
  Report Type: Spontaneous
  Country: US (occurrence: US)
  Receive Date: 20190717
  Receipt Date: 20190802
  Transmission Date: 20191004
  Serious: No
  Sender: FDA-Public Use
  Company Number: US-PFIZER INC-2019300043

PATIENT
  Age: 53 Year
  Sex: Female

DRUGS (1)
  1. XELJANZ XR [Suspect]
     Active Substance: TOFACITINIB CITRATE
     Dosage: 11 MG, UNK

REACTIONS (10)
  - Loss of personal independence in daily activities [Unknown]
  - Fatigue [Unknown]
  - Memory impairment [Unknown]
  - Product dose omission [Unknown]
  - Asthenia [Unknown]
  - Depression [Unknown]
  - Somnambulism [Unknown]
  - Pain [Unknown]
  - Bladder disorder [Unknown]
  - Musculoskeletal discomfort [Unknown]

NARRATIVE: CASE EVENT DATE: 201906
